FAERS Safety Report 22038261 (Version 1)
Quarter: 2023Q1

REPORT INFORMATION
  Report Type: Spontaneous
  Country: KW (occurrence: KW)
  Receive Date: 20230227
  Receipt Date: 20230227
  Transmission Date: 20230417
  Serious: Yes (Death, Hospitalization, Other)
  Sender: FDA-Public Use
  Company Number: KW-STERISCIENCE B.V.-2023-ST-000797

PATIENT
  Age: 62 Year
  Sex: Female

DRUGS (11)
  1. VANCOMYCIN [Suspect]
     Active Substance: VANCOMYCIN
     Indication: Antibiotic therapy
     Dosage: FOUR COURSES ON DAYS 13, 16, 34 AND 75 AT DOSES 500-1000MG
  2. VANCOMYCIN [Suspect]
     Active Substance: VANCOMYCIN
     Dosage: FOUR COURSES ON DAYS 13, 16, 34 AND 75 AT DOSES 500-1000MG
  3. VANCOMYCIN [Suspect]
     Active Substance: VANCOMYCIN
     Dosage: FOUR COURSES ON DAYS 13, 16, 34 AND 75 AT DOSES 500-1000MG
  4. VANCOMYCIN [Suspect]
     Active Substance: VANCOMYCIN
     Dosage: FOUR COURSES ON DAYS 13, 16, 34 AND 75 AT DOSES 500-1000MG
  5. ANGIOMAX [Suspect]
     Active Substance: BIVALIRUDIN
     Indication: Thrombosis prophylaxis
     Dosage: UNK
  6. ANGIOMAX [Suspect]
     Active Substance: BIVALIRUDIN
     Indication: Anticoagulant therapy
  7. AMIKACIN [Suspect]
     Active Substance: AMIKACIN
     Indication: Antibiotic therapy
     Dosage: 240 MILLIGRAM
  8. CEFTRIAXONE [Suspect]
     Active Substance: CEFTRIAXONE
     Indication: Antibiotic therapy
     Dosage: UNK
  9. LINEZOLID [Suspect]
     Active Substance: LINEZOLID
     Indication: Antibiotic therapy
     Dosage: UNK
  10. HEPARIN [Concomitant]
     Active Substance: HEPARIN SODIUM
     Indication: Haemodialysis
     Dosage: UNK
  11. WARFARIN [Concomitant]
     Active Substance: WARFARIN
     Indication: Thrombosis prophylaxis
     Dosage: UNK

REACTIONS (2)
  - Immune thrombocytopenia [Fatal]
  - Drug ineffective [Fatal]
